FAERS Safety Report 6750062-1 (Version None)
Quarter: 2010Q2

REPORT INFORMATION
  Report Type: 
  Country: None (occurrence: None)
  Receive Date: 20100601
  Receipt Date: 20100520
  Transmission Date: 20101027
  Serious: Yes (Other)
  Sender: FDA-Public Use
  Company Number: JP-PFIZER INC-2010048066

PATIENT
  Age: 15 Year
  Sex: Male
  Weight: 40 kg

DRUGS (6)
  1. ZYVOX [Suspect]
     Indication: WOUND INFECTION STAPHYLOCOCCAL
     Dosage: 600 MG, 1X/DAY
     Route: 042
     Dates: start: 20100130, end: 20100413
  2. ZYVOX [Suspect]
     Indication: SEPSIS
  3. MAXIPIME [Suspect]
     Indication: BACTERIAL INFECTION
     Dosage: 1 G, 3X/DAY
     Route: 042
     Dates: start: 20100407, end: 20100412
  4. MAXIPIME [Suspect]
     Indication: SEPSIS
     Dosage: 1 G, 2X/DAY
     Route: 042
     Dates: start: 20100413
  5. DOBUTAMINE HYDROCHLORIDE [Concomitant]
     Dosage: UNK
     Route: 042
     Dates: start: 20091108
  6. CORETEC [Concomitant]
     Dosage: UNK
     Route: 042
     Dates: start: 20091119

REACTIONS (1)
  - DEPRESSED LEVEL OF CONSCIOUSNESS [None]
